FAERS Safety Report 6769513-1 (Version None)
Quarter: 2010Q2

REPORT INFORMATION
  Report Type: 
  Country: None (occurrence: None)
  Receive Date: 20100615
  Receipt Date: 20100602
  Transmission Date: 20101027
  Serious: Yes (Death, Hospitalization)
  Sender: FDA-Public Use
  Company Number: GB-GENZYME-CLOF-1000747

PATIENT
  Sex: Male

DRUGS (3)
  1. EVOLTRA [Suspect]
     Indication: ACUTE MYELOID LEUKAEMIA
     Dosage: 38 MG, QD
     Route: 042
     Dates: start: 20061127, end: 20061201
  2. EVOLTRA [Suspect]
     Dosage: 38 MG, QDX5
     Route: 042
     Dates: start: 20070108, end: 20070112
  3. OMEPRAZOLE [Concomitant]
     Indication: DRUG USE FOR UNKNOWN INDICATION

REACTIONS (6)
  - ACUTE MYELOID LEUKAEMIA [None]
  - EPIGLOTTITIS [None]
  - LUNG INFECTION PSEUDOMONAL [None]
  - PLEURAL EFFUSION [None]
  - PNEUMONIA ASPIRATION [None]
  - STRIDOR [None]
